FAERS Safety Report 18963252 (Version 1)
Quarter: 2021Q1

REPORT INFORMATION
  Report Type: Spontaneous
  Country: US (occurrence: US)
  Receive Date: 20210303
  Receipt Date: 20210303
  Transmission Date: 20210420
  Serious: No
  Sender: FDA-Public Use
  Company Number: US-SA-2021SA071595

PATIENT
  Age: 19 Year
  Sex: Female

DRUGS (3)
  1. TRIAMCINOLONE [Concomitant]
     Active Substance: TRIAMCINOLONE
     Dosage: UNK
  2. DUPIXENT [Suspect]
     Active Substance: DUPILUMAB
     Indication: SKIN DISORDER
     Dosage: 300 MG, QM
     Route: 058
     Dates: start: 20210215
  3. ZITHROMAX [Concomitant]
     Active Substance: AZITHROMYCIN DIHYDRATE
     Dosage: 500 MG

REACTIONS (4)
  - Sleep disorder [Unknown]
  - Rash [Unknown]
  - Product used for unknown indication [Unknown]
  - Discomfort [Unknown]

NARRATIVE: CASE EVENT DATE: 20210215
